FAERS Safety Report 5266751-4 (Version None)
Quarter: 2007Q1

REPORT INFORMATION
  Report Type: 
  Country: None (occurrence: None)
  Receive Date: 20070307
  Receipt Date: 20070221
  Transmission Date: 20070707
  Serious: Yes (Hospitalization)
  Sender: FDA-Public Use
  Company Number: 2007309271

PATIENT
  Age: 77 Year
  Sex: Female
  Weight: 36.3 kg

DRUGS (1)
  1. ROGAINE [Suspect]
     Indication: ALOPECIA
     Dosage: RECOMMENDED AMOUNT TWICE A DAY (2 IN 1 D), TOPICAL
     Route: 061
     Dates: start: 20000101

REACTIONS (2)
  - ABDOMINAL INJURY [None]
  - ALOPECIA [None]
